FAERS Safety Report 5081171-3 (Version None)
Quarter: 2006Q3

REPORT INFORMATION
  Report Type: 
  Country: None (occurrence: None)
  Receive Date: 20060810
  Receipt Date: 20060803
  Transmission Date: 20061208
  Serious: Yes (Hospitalization)
  Sender: FDA-Public Use
  Company Number: 2006BI011035

PATIENT
  Age: 43 Year
  Sex: Female

DRUGS (2)
  1. AVONEX [Suspect]
     Indication: MULTIPLE SCLEROSIS
     Dosage: 30 UG; QW; IM
     Route: 030
     Dates: start: 19970901, end: 20030101
  2. AVONEX [Suspect]
     Indication: MULTIPLE SCLEROSIS
     Dosage: 30 UG; QW; IM
     Route: 030
     Dates: start: 20030101

REACTIONS (8)
  - ABASIA [None]
  - CONDITION AGGRAVATED [None]
  - DIZZINESS [None]
  - DROOLING [None]
  - DRUG SPECIFIC ANTIBODY PRESENT [None]
  - DYSARTHRIA [None]
  - HYPOAESTHESIA FACIAL [None]
  - MULTIPLE SCLEROSIS [None]
